FAERS Safety Report 8996514 (Version 1)
Quarter: 2013Q1

REPORT INFORMATION
  Report Type: Spontaneous
  Country: US (occurrence: US)
  Receive Date: 20130104
  Receipt Date: 20130104
  Transmission Date: 20140127
  Serious: No
  Sender: FDA-Public Use
  Company Number: US-PFIZER INC-2013002445

PATIENT
  Age: 84 Year
  Sex: Female
  Weight: 64.4 kg

DRUGS (3)
  1. LYRICA [Suspect]
     Indication: BURNING FEET SYNDROME
     Dosage: 50 MG, DAILY
     Dates: start: 2012, end: 2012
  2. LYRICA [Suspect]
     Dosage: 75 MG, 2X/DAY
  3. ATENOLOL [Concomitant]
     Indication: HYPERTENSION
     Dosage: 25 MG, 2X/DAY

REACTIONS (4)
  - Drug intolerance [Unknown]
  - Vision blurred [Not Recovered/Not Resolved]
  - Visual impairment [Not Recovered/Not Resolved]
  - Blood sodium decreased [Unknown]
